FAERS Safety Report 20835735 (Version 1)
Quarter: 2022Q2

REPORT INFORMATION
  Report Type: 
  Country: None (occurrence: None)
  Receive Date: 20220516
  Receipt Date: 20220516
  Transmission Date: 20220720
  Serious: No
  Sender: FDA-Public Use
  Company Number: US-ROCHE-3091198

PATIENT
  Age: 3 Year

DRUGS (1)
  1. EVRYSDI [Suspect]
     Active Substance: RISDIPLAM
     Dosage: YES
     Dates: start: 20200502

REACTIONS (2)
  - Sepsis [None]
  - Respiratory syncytial virus infection [None]

NARRATIVE: CASE EVENT DATE: 20220501
